FAERS Safety Report 6189859-8 (Version None)
Quarter: 2009Q2

REPORT INFORMATION
  Report Type: 
  Country: None (occurrence: None)
  Receive Date: 20090514
  Receipt Date: 20090511
  Transmission Date: 20091009
  Serious: Yes (Hospitalization)
  Sender: FDA-Public Use
  Company Number: US-BAYER-200911474BCC

PATIENT
  Age: 73 Year
  Sex: Male
  Weight: 113 kg

DRUGS (10)
  1. ASPIRIN [Suspect]
     Indication: BLOOD CHOLESTEROL INCREASED
     Route: 048
     Dates: start: 20080501
  2. METFORMIN HCL [Concomitant]
     Dosage: TOTAL DAILY DOSE: 2000 MG
  3. GLIPIZIDE [Concomitant]
     Dosage: TOTAL DAILY DOSE: 20 MG
  4. LOVASTATIN [Concomitant]
  5. OXYBUTYNIN [Concomitant]
     Dosage: AS USED: 5 MG
  6. TERAZOSIN HCL [Concomitant]
  7. GENERIC ONE-A-DAY [Concomitant]
  8. NATURE MADE VITAMIN B12 [Concomitant]
  9. FLINTSTONES PLUS IRON [Concomitant]
  10. OMEPRAZOLE [Concomitant]
     Dosage: TOTAL DAILY DOSE: 40 MG

REACTIONS (4)
  - ANAEMIA [None]
  - GASTROINTESTINAL ULCER HAEMORRHAGE [None]
  - HAEMOGLOBIN DECREASED [None]
  - INFLUENZA LIKE ILLNESS [None]
